FAERS Safety Report 7227713-0 (Version None)
Quarter: 2011Q1

REPORT INFORMATION
  Report Type: 
  Country: None (occurrence: None)
  Receive Date: 20110114
  Receipt Date: 20101101
  Transmission Date: 20110831
  Serious: Yes (Other)
  Sender: FDA-Public Use
  Company Number: PHHY2010US74462

PATIENT
  Age: 70 Year
  Sex: Female

DRUGS (8)
  1. PIRESPA [Suspect]
     Indication: PULMONARY FIBROSIS
     Dosage: 1800 MG, QD
     Route: 048
     Dates: start: 20090421
  2. BAKTAR [Suspect]
  3. PIRESPA [Suspect]
     Dosage: 1200 MG, QD
     Route: 048
  4. LIPITOR [Concomitant]
  5. PREDONINE [Concomitant]
  6. FOSAMAX [Concomitant]
     Dosage: 35 MG, UNK
  7. NEORAL [Suspect]
  8. GASTER D [Concomitant]

REACTIONS (2)
  - BLOOD POTASSIUM INCREASED [None]
  - LIVER DISORDER [None]
